FAERS Safety Report 7137126-8 (Version None)
Quarter: 2010Q4

REPORT INFORMATION
  Report Type: 
  Country: None (occurrence: None)
  Receive Date: 20101206
  Receipt Date: 20070831
  Transmission Date: 20110411
  Serious: Yes (Death)
  Sender: FDA-Public Use
  Company Number: US-ACTELION-A-US2007-15367

PATIENT

DRUGS (22)
  1. ILOPROST INHALATION SOLUTION 5UG US [Suspect]
     Indication: PULMONARY HYPERTENSION
     Dosage: 5 UG, 6-9 X DAY
     Route: 055
     Dates: start: 20070206, end: 20070427
  2. REVATIO [Concomitant]
  3. LOPERAMIDE [Concomitant]
  4. EVOXAC [Concomitant]
  5. EVISTA [Concomitant]
  6. SINGULAIR [Concomitant]
  7. LASIX [Concomitant]
  8. BETOPTIC [Concomitant]
  9. AZOPT [Concomitant]
  10. DIOVAN [Concomitant]
  11. NASONEX [Concomitant]
  12. LOVASTATIN [Concomitant]
  13. CLOBEX [Concomitant]
  14. ALBUTEROL [Concomitant]
  15. VERAPAMIL [Concomitant]
  16. LEVOTHYROXINE SODIUM [Concomitant]
  17. HYDROCODONE [Concomitant]
  18. ADVIL [Concomitant]
  19. SPIRIVA [Concomitant]
  20. KEFLEX [Concomitant]
  21. TRAMADOL HCL [Concomitant]
  22. PREMARIN [Concomitant]

REACTIONS (1)
  - DEATH [None]
